FAERS Safety Report 22320684 (Version 1)
Quarter: 2023Q2

REPORT INFORMATION
  Report Type: Spontaneous
  Country: ES (occurrence: ES)
  Receive Date: 20230515
  Receipt Date: 20230515
  Transmission Date: 20230722
  Serious: Yes (Life-Threatening)
  Sender: FDA-Public Use
  Company Number: None

PATIENT
  Age: 35 Year
  Sex: Female
  Weight: 57 kg

DRUGS (5)
  1. SPIRIVA [Suspect]
     Active Substance: TIOTROPIUM BROMIDE MONOHYDRATE
     Indication: Asthma
     Dosage: 1 INHALATION
     Route: 055
     Dates: start: 20230428, end: 20230428
  2. SYMBICORT [Suspect]
     Active Substance: BUDESONIDE\FORMOTEROL FUMARATE DIHYDRATE
     Indication: Asthma
     Dosage: 2 INHALATIONS,
     Dates: start: 20230427
  3. MOXIFLOXACIN HYDROCHLORIDE [Suspect]
     Active Substance: MOXIFLOXACIN HYDROCHLORIDE
     Indication: Bronchitis
     Dosage: 1 TABLET
     Dates: start: 20230428
  4. MONTELUKAST SODIUM [Concomitant]
     Active Substance: MONTELUKAST SODIUM
     Indication: Product used for unknown indication
     Dosage: 1 TABLET, AT NIGHT
     Dates: start: 20230427
  5. PARACETAMOL NORMON 650 mg COMPRIMIDOS EFG, 40 comprimidos [Concomitant]
     Indication: Product used for unknown indication
     Dosage: 1 TABLET
     Dates: start: 20230428, end: 20230429

REACTIONS (6)
  - Nausea [Recovered/Resolved]
  - Vision blurred [Recovered/Resolved]
  - Sluggishness [Recovered/Resolved]
  - Hypoaesthesia [Recovered/Resolved]
  - Vomiting [Recovered/Resolved]
  - Formication [Recovered/Resolved]

NARRATIVE: CASE EVENT DATE: 20230428
